FAERS Safety Report 10657108 (Version 1)
Quarter: 2014Q4

REPORT INFORMATION
  Report Type: Spontaneous
  Country: US (occurrence: US)
  Receive Date: 20141217
  Receipt Date: 20141217
  Transmission Date: 20150529
  Serious: No
  Sender: FDA-Public Use
  Company Number: US-BIOGENIDEC-2014BI132317

PATIENT
  Age: 47 Year
  Sex: Female

DRUGS (15)
  1. METFORMIN HCI ER (OSM) [Concomitant]
  2. MORPHINE SULFATE. [Concomitant]
     Active Substance: MORPHINE SULFATE
  3. TECFIDERA [Suspect]
     Active Substance: DIMETHYL FUMARATE
     Indication: MULTIPLE SCLEROSIS
  4. CYMBALTA [Concomitant]
     Active Substance: DULOXETINE HYDROCHLORIDE
  5. INVOKANA [Concomitant]
     Active Substance: CANAGLIFLOZIN
  6. MODAFINIL. [Concomitant]
     Active Substance: MODAFINIL
  7. REQUIP [Concomitant]
     Active Substance: ROPINIROLE HYDROCHLORIDE
  8. LISINOPRIL. [Concomitant]
     Active Substance: LISINOPRIL
  9. OXYCODONE HCI ER [Concomitant]
  10. ABILIFY DISCMELT [Concomitant]
     Active Substance: ARIPIPRAZOLE
  11. VIMPAT [Concomitant]
     Active Substance: LACOSAMIDE
  12. ATORVASTATIN CALCIUM. [Concomitant]
     Active Substance: ATORVASTATIN CALCIUM
  13. ESTRADIOL. [Concomitant]
     Active Substance: ESTRADIOL
  14. TEMAZEPAM. [Concomitant]
     Active Substance: TEMAZEPAM
  15. TIZANIDINE HCI [Concomitant]
     Active Substance: TIZANIDINE HYDROCHLORIDE

REACTIONS (4)
  - Pain in extremity [Unknown]
  - Chest pain [Unknown]
  - Facial pain [Unknown]
  - Paraesthesia [Unknown]

NARRATIVE: CASE EVENT DATE: 201411
